FAERS Safety Report 15002732 (Version 2)
Quarter: 2018Q4

REPORT INFORMATION
  Report Type: Spontaneous
  Country: IT (occurrence: IT)
  Receive Date: 20180612
  Receipt Date: 20181203
  Transmission Date: 20190204
  Serious: Yes (Hospitalization)
  Sender: FDA-Public Use
  Company Number: PHHY2018IT018270

PATIENT
  Age: 28 Year
  Sex: Male

DRUGS (8)
  1. ZONEGRAN [Suspect]
     Active Substance: ZONISAMIDE
     Dosage: 75 MG, QD
     Route: 048
     Dates: start: 20170610
  2. TEGRETOL [Suspect]
     Active Substance: CARBAMAZEPINE
     Indication: EPILEPSY
     Dosage: 200 MG, QD
     Route: 048
  3. GARDENALE [Suspect]
     Active Substance: PHENOBARBITAL
     Dosage: 1 DF, QD
     Route: 048
     Dates: start: 20170610
  4. PHENYTOIN. [Suspect]
     Active Substance: PHENYTOIN
     Indication: EPILEPSY
     Dosage: 3.5 ?G/L, QD
     Route: 048
  5. GARDENALE [Suspect]
     Active Substance: PHENOBARBITAL
     Route: 048
     Dates: start: 20170101, end: 20170610
  6. ZONEGRAN [Suspect]
     Active Substance: ZONISAMIDE
     Indication: EPILEPSY
     Dosage: 75 MG, QD
     Route: 048
     Dates: start: 20170101
  7. ZONEGRAN [Suspect]
     Active Substance: ZONISAMIDE
     Dosage: 75 MG, UNK
     Route: 048
     Dates: start: 20170101, end: 20170610
  8. GARDENALE [Suspect]
     Active Substance: PHENOBARBITAL
     Indication: EPILEPSY
     Dosage: 1 DF, QD
     Route: 048
     Dates: start: 20170101

REACTIONS (4)
  - Fall [Unknown]
  - Psychomotor retardation [Unknown]
  - Balance disorder [Unknown]
  - Overdose [Unknown]

NARRATIVE: CASE EVENT DATE: 20170610
